FAERS Safety Report 6311950-3 (Version None)
Quarter: 2009Q3

REPORT INFORMATION
  Report Type: 
  Country: None (occurrence: None)
  Receive Date: 20090817
  Receipt Date: 20080708
  Transmission Date: 20100115
  Serious: Yes (Other)
  Sender: FDA-Public Use
  Company Number: US-BRISTOL-MYERS SQUIBB COMPANY-14255319

PATIENT
  Sex: Female

DRUGS (6)
  1. ESTRACE [Suspect]
     Indication: HORMONE REPLACEMENT THERAPY
     Dosage: CONTINUED THROUGH JAN2001.
     Dates: start: 19901101
  2. PREMARIN [Suspect]
     Indication: HORMONE REPLACEMENT THERAPY
     Dosage: CONTINUED THROUGH JAN2001.
     Dates: start: 19901101
  3. OGEN [Suspect]
     Indication: HORMONE REPLACEMENT THERAPY
     Dosage: CONTINUED THROUGH JAN2001.
     Dates: start: 19901101
  4. PREMPRO [Suspect]
     Indication: HORMONE REPLACEMENT THERAPY
     Dosage: CONTINUED THROUGH JAN2001.
     Dates: start: 19901101
  5. PROVERA [Suspect]
     Indication: HORMONE REPLACEMENT THERAPY
     Dosage: CONTINUED THROUGH JAN2001.
     Dates: start: 19901101
  6. MEDROXYPROGESTERONE ACETATE [Suspect]
     Indication: HORMONE REPLACEMENT THERAPY
     Dosage: CONTINUED THROUGH JAN2001.
     Dates: start: 19901101

REACTIONS (1)
  - BREAST CANCER [None]
